FAERS Safety Report 6329290-5 (Version None)
Quarter: 2009Q3

REPORT INFORMATION
  Report Type: 
  Country: None (occurrence: None)
  Receive Date: 20090826
  Receipt Date: 20090814
  Transmission Date: 20100115
  Serious: Yes (Hospitalization)
  Sender: FDA-Public Use
  Company Number: US-ELI_LILLY_AND_COMPANY-US200908003445

PATIENT
  Age: 6 Year
  Sex: Male
  Weight: 24.8 kg

DRUGS (6)
  1. PEMETREXED [Suspect]
     Indication: RECURRENT CANCER
     Dosage: 1750 MG, OTHER
     Route: 042
     Dates: start: 20090727
  2. MULTI-VITAMIN [Concomitant]
  3. VITAMIN B-12 [Concomitant]
     Dosage: 0.5 MG, OTHER
     Route: 030
     Dates: start: 20090701
  4. DECADRON [Concomitant]
     Dosage: 0.1 MG/KG, OTHER
     Route: 048
     Dates: start: 20090701
  5. CATAPRES /00171102/ [Concomitant]
  6. ENALAPRIL MALEATE [Concomitant]
     Dosage: 2.5 ML, 2/D
     Route: 048

REACTIONS (1)
  - SYNCOPE [None]
